FAERS Safety Report 15120974 (Version 2)
Quarter: 2019Q1

REPORT INFORMATION
  Report Type: Spontaneous
  Country: US (occurrence: US)
  Receive Date: 20180709
  Receipt Date: 20190306
  Transmission Date: 20190417
  Serious: No
  Sender: FDA-Public Use
  Company Number: US-SA-2018SA177843

PATIENT
  Sex: Female

DRUGS (17)
  1. MONTELUKAST SODIUM. [Concomitant]
     Active Substance: MONTELUKAST SODIUM
  2. ALEVICYN ANTIPRURITIC GEL [Concomitant]
  3. ADVAIR HFA [Concomitant]
     Active Substance: FLUTICASONE PROPIONATE\SALMETEROL XINAFOATE
  4. CHANTIX [Concomitant]
     Active Substance: VARENICLINE TARTRATE
  5. EUCRISA [Concomitant]
     Active Substance: CRISABOROLE
  6. CICLOPIROX. [Concomitant]
     Active Substance: CICLOPIROX
  7. ACZONE [Concomitant]
     Active Substance: DAPSONE
  8. DUPIXENT [Suspect]
     Active Substance: DUPILUMAB
     Indication: DERMATITIS ATOPIC
     Dosage: 300 MG, QOW
     Route: 058
     Dates: start: 201803
  9. ONDANSETRON HCL [Concomitant]
     Active Substance: ONDANSETRON HYDROCHLORIDE
  10. PIMECROLIMUS. [Concomitant]
     Active Substance: PIMECROLIMUS
  11. DUPIXENT [Suspect]
     Active Substance: DUPILUMAB
     Indication: ECZEMA
  12. VENTOLIN [Concomitant]
     Active Substance: ALBUTEROL SULFATE
  13. ELIDEL [Concomitant]
     Active Substance: PIMECROLIMUS
  14. ULTRAVATE [BETAMETHASONE DIPROPIONATE] [Concomitant]
  15. ATORVASTATIN CALCIUM. [Concomitant]
     Active Substance: ATORVASTATIN CALCIUM
  16. FLUTICASONE PROPIONATE AND SALMETEROL [Concomitant]
     Active Substance: FLUTICASONE PROPIONATE\SALMETEROL XINAFOATE
  17. LIPITOR [Concomitant]
     Active Substance: ATORVASTATIN CALCIUM

REACTIONS (2)
  - Dermatitis [Recovered/Resolved]
  - Eczema [Recovered/Resolved]

NARRATIVE: CASE EVENT DATE: 201902
